FAERS Safety Report 11756236 (Version 2)
Quarter: 2015Q4

REPORT INFORMATION
  Report Type: Spontaneous
  Country: US (occurrence: US)
  Receive Date: 20151119
  Receipt Date: 20151201
  Transmission Date: 20160304
  Serious: Yes (Other)
  Sender: FDA-Public Use
  Company Number: US-EXELIXIS-CABO-15005801

PATIENT
  Age: 64 Year
  Sex: Male

DRUGS (8)
  1. WARFARIN [Suspect]
     Active Substance: WARFARIN
     Dosage: 27.5 MG, Q WEEKLY
     Dates: start: 2012
  2. COMETRIQ [Suspect]
     Active Substance: CABOZANTINIB S-MALATE
     Indication: RENAL CELL CARCINOMA
     Dosage: 140 MG, QD
     Route: 048
  3. WARFARIN [Suspect]
     Active Substance: WARFARIN
     Indication: ANTICOAGULANT THERAPY
     Dosage: 37.5 MG, Q WEEKLY
     Dates: start: 2012
  4. WARFARIN [Suspect]
     Active Substance: WARFARIN
     Dosage: 37.5 MG, Q WEEKLY
  5. OXYCODONE [Concomitant]
     Active Substance: OXYCODONE
  6. ZOLPIDEM [Concomitant]
     Active Substance: ZOLPIDEM\ZOLPIDEM TARTRATE
  7. ONDANSETRON [Concomitant]
     Active Substance: ONDANSETRON
  8. ZOLEDRONIC ACID [Concomitant]
     Active Substance: ZOLEDRONIC ACID

REACTIONS (11)
  - Drug interaction [Recovered/Resolved]
  - Dermatitis acneiform [Unknown]
  - Epistaxis [Unknown]
  - Liver function test abnormal [Recovering/Resolving]
  - International normalised ratio increased [Recovered/Resolved]
  - Decreased appetite [Unknown]
  - Fatigue [Unknown]
  - Off label use [Unknown]
  - Oral pain [Unknown]
  - Nausea [Unknown]
  - Blood bilirubin increased [Recovering/Resolving]
